FAERS Safety Report 15798470 (Version 1)
Quarter: 2019Q1

REPORT INFORMATION
  Report Type: Spontaneous
  Country: DE (occurrence: DE)
  Receive Date: 20190108
  Receipt Date: 20190108
  Transmission Date: 20190417
  Serious: Yes (Other)
  Sender: FDA-Public Use
  Company Number: DE-MYLANLABS-2019M1000145

PATIENT
  Age: 55 Year
  Sex: Male
  Weight: 94 kg

DRUGS (9)
  1. RILPIVIRINE [Concomitant]
     Active Substance: RILPIVIRINE
     Dosage: UNK
  2. AZT [Concomitant]
     Active Substance: ZIDOVUDINE
     Dosage: UNK
  3. EMTRIVA [Concomitant]
     Active Substance: EMTRICITABINE
     Dosage: UNK
  4. TENOFOVIR [Suspect]
     Active Substance: TENOFOVIR
     Indication: HIV INFECTION
     Dosage: UNK
     Route: 065
  5. DOLUTEGRAVIR [Concomitant]
     Active Substance: DOLUTEGRAVIR
     Dosage: UNK
  6. LOPINAVIR/RITONAVIR [Concomitant]
     Active Substance: LOPINAVIR\RITONAVIR
     Dosage: UNK
  7. NVP [Concomitant]
     Dosage: UNK
  8. TENOFOVIR [Suspect]
     Active Substance: TENOFOVIR
     Indication: HEPATITIS B
  9. 3TC [Concomitant]
     Active Substance: LAMIVUDINE
     Dosage: UNK

REACTIONS (3)
  - Viral load increased [Unknown]
  - Drug ineffective [Unknown]
  - Nephropathy toxic [Unknown]
